FAERS Safety Report 10100047 (Version 2)
Quarter: 2014Q2

REPORT INFORMATION
  Report Type: Spontaneous
  Country: IT (occurrence: IT)
  Receive Date: 20140423
  Receipt Date: 20140501
  Transmission Date: 20141212
  Serious: Yes (Life-Threatening)
  Sender: FDA-Public Use
  Company Number: PHHY2014IT045903

PATIENT
  Age: 51 Year
  Sex: Male

DRUGS (5)
  1. PAROXETINE [Suspect]
     Dosage: 140 MG, ONCE/SINGLE
     Route: 048
     Dates: start: 20140330, end: 20140330
  2. DELORAZEPAM [Suspect]
     Dosage: 80 MG, ONCE/SINGLE
     Route: 048
     Dates: start: 20140330, end: 20140330
  3. CARBOLITHIUM [Suspect]
     Dosage: 12 G, ONCE/SINGLE
     Route: 048
     Dates: start: 20140330, end: 20140330
  4. SEROQUEL [Suspect]
     Dosage: 34 G, ONCE/SINGLE
     Route: 048
     Dates: start: 20140330, end: 20140330
  5. ETILTOX [Suspect]
     Dosage: 2 G, ONCE/SINGLE
     Route: 048
     Dates: start: 20140330, end: 20140330

REACTIONS (3)
  - Respiratory failure [Recovered/Resolved]
  - Intentional self-injury [Recovered/Resolved]
  - Coma [Recovered/Resolved]
